FAERS Safety Report 5208357-9 (Version None)
Quarter: 2007Q1

REPORT INFORMATION
  Report Type: 
  Country: None (occurrence: None)
  Receive Date: 20070111
  Receipt Date: 20070111
  Transmission Date: 20070707
  Serious: No
  Sender: FDA-Public Use
  Company Number: None

PATIENT
  Age: 80 Year
  Sex: Female
  Weight: 52.1637 kg

DRUGS (2)
  1. LYRICA [Suspect]
     Indication: HERPES ZOSTER
     Dosage: ONE CAPSULE TWICE DAILY PO
     Route: 048
     Dates: start: 20050615, end: 20061231
  2. LYRICA [Suspect]
     Indication: NEURALGIA
     Dosage: ONE CAPSULE TWICE DAILY PO
     Route: 048
     Dates: start: 20050615, end: 20061231

REACTIONS (9)
  - ASTHENIA [None]
  - DIZZINESS [None]
  - FATIGUE [None]
  - HEADACHE [None]
  - MUSCLE SPASMS [None]
  - NEURALGIA [None]
  - PAIN IN EXTREMITY [None]
  - PHARMACEUTICAL PRODUCT COMPLAINT [None]
  - SYNCOPE [None]
